FAERS Safety Report 6916061-1 (Version None)
Quarter: 2010Q3

REPORT INFORMATION
  Report Type: 
  Country: None (occurrence: None)
  Receive Date: 20100810
  Receipt Date: 20100804
  Transmission Date: 20110219
  Serious: No
  Sender: FDA-Public Use
  Company Number: US-BIOGENIDEC-2010BI008042

PATIENT
  Sex: Male

DRUGS (1)
  1. TYSABRI [Suspect]
     Indication: MULTIPLE SCLEROSIS
     Route: 042
     Dates: start: 20070918, end: 20100704

REACTIONS (5)
  - BACK DISORDER [None]
  - DRUG INEFFECTIVE [None]
  - INTERVERTEBRAL DISC PROTRUSION [None]
  - LOSS OF CONTROL OF LEGS [None]
  - OEDEMA PERIPHERAL [None]
